FAERS Safety Report 13121485 (Version 1)
Quarter: 2017Q1

REPORT INFORMATION
  Report Type: Spontaneous
  Country: US (occurrence: US)
  Receive Date: 20170116
  Receipt Date: 20170116
  Transmission Date: 20170428
  Serious: No
  Sender: FDA-Public Use
  Company Number: None

PATIENT
  Age: 35 Year
  Sex: Female

DRUGS (4)
  1. HYDROCORTISONE CREAM [Concomitant]
     Active Substance: HYDROCORTISONE
  2. EPIPEN [Concomitant]
     Active Substance: EPINEPHRINE
  3. XOLAIR [Suspect]
     Active Substance: OMALIZUMAB
     Indication: IDIOPATHIC URTICARIA
     Dosage: Q4WKS
     Route: 058
     Dates: start: 20160927
  4. CLARITHROMYCIN. [Concomitant]
     Active Substance: CLARITHROMYCIN

REACTIONS (1)
  - Exposure during pregnancy [None]

NARRATIVE: CASE EVENT DATE: 20170110
